FAERS Safety Report 10006778 (Version 1)
Quarter: 2014Q1

REPORT INFORMATION
  Report Type: Spontaneous
  Country: US (occurrence: None)
  Receive Date: 20140311
  Receipt Date: 20140311
  Transmission Date: 20141002
  Serious: Yes (Hospitalization)
  Sender: FDA-Public Use
  Company Number: 20140102

PATIENT
  Age: 68 Year
  Sex: Male

DRUGS (21)
  1. LIDOCAINE HCL [Suspect]
     Indication: VENTRICULAR FIBRILLATION
     Dosage: 2 G BOLUS; THEN 1-2
     Route: 040
  2. DEXMEDETOMIDINE [Suspect]
     Indication: SEDATION
     Dosage: 4 UG/ML (0.8 UG/KG/H
  3. ACETAMINOPHEN [Concomitant]
  4. FUROSEMIDE [Concomitant]
  5. REGULAR INSULIN [Concomitant]
  6. EPINEPHRINE [Concomitant]
  7. MILRINONE [Concomitant]
  8. CEFAZOLIN [Concomitant]
  9. PROPOFOL [Concomitant]
  10. CEFTRIAXONE [Concomitant]
  11. BUMETANIDE [Concomitant]
  12. ASPIRIN [Concomitant]
  13. NOREPINEPHRINE [Concomitant]
  14. DILITIAZEM [Concomitant]
  15. PIPERACILLIN / TAZOBACTAM [Concomitant]
  16. FENTANYL [Concomitant]
  17. LORAZEPAM [Concomitant]
  18. VANCOMYCIN [Concomitant]
  19. AMIODARONE [Concomitant]
  20. DIGOXIN [Concomitant]
  21. HYDROCODONE [Concomitant]

REACTIONS (6)
  - Pyrexia [None]
  - Unresponsive to stimuli [None]
  - Hypotonia [None]
  - Atrial fibrillation [None]
  - Sick sinus syndrome [None]
  - Ischaemic stroke [None]
